FAERS Safety Report 25289726 (Version 1)
Quarter: 2025Q2

REPORT INFORMATION
  Report Type: Report from Study
  Country: NL (occurrence: NL)
  Receive Date: 20250509
  Receipt Date: 20250509
  Transmission Date: 20250717
  Serious: Yes (Other)
  Sender: MYLAN
  Company Number: NL-TEVA-VS-3324641

PATIENT
  Age: 57 Year
  Sex: Female

DRUGS (2)
  1. GLATIRAMER ACETATE [Suspect]
     Active Substance: GLATIRAMER ACETATE
     Indication: Relapsing multiple sclerosis
  2. COPAXONE [Suspect]
     Active Substance: GLATIRAMER ACETATE
     Indication: Relapsing multiple sclerosis
     Dosage: 20 MILLIGRAM PER MILLILITRE, QD

REACTIONS (4)
  - Malaise [Unknown]
  - Paraesthesia [Unknown]
  - Wrong product administered [Unknown]
  - Product dispensing error [Unknown]
